FAERS Safety Report 8436035-1 (Version None)
Quarter: 2012Q2

REPORT INFORMATION
  Report Type: 
  Country: None (occurrence: None)
  Receive Date: 20120614
  Receipt Date: 20120605
  Transmission Date: 20120825
  Serious: Yes (Hospitalization, Other)
  Sender: FDA-Public Use
  Company Number: DE-ABBOTT-12P-062-0930314-00

PATIENT
  Sex: Male
  Weight: 97 kg

DRUGS (9)
  1. FOLCUR [Concomitant]
     Indication: ANKYLOSING SPONDYLITIS
     Dates: start: 20100928, end: 20120401
  2. PREDNISOLONE [Concomitant]
     Indication: ANKYLOSING SPONDYLITIS
     Dosage: DAILY
  3. ARCOXIA [Concomitant]
     Indication: ANKYLOSING SPONDYLITIS
     Dosage: 90 MG DAILY
     Dates: start: 20050501
  4. PANTOPRAZOLE [Concomitant]
     Indication: PRODUCT USED FOR UNKNOWN INDICATION
     Dosage: DAILY
  5. METHOTREXATE SODIUM [Concomitant]
     Indication: ANKYLOSING SPONDYLITIS
     Dosage: 25 MG PER WEEK
     Dates: start: 20011201, end: 20120401
  6. BISOPROLOL FUMARATE [Concomitant]
     Indication: HYPERTENSION
     Dosage: DAILY
  7. HUMIRA [Suspect]
     Indication: ANKYLOSING SPONDYLITIS
     Route: 058
     Dates: start: 20091230, end: 20120409
  8. GLUCOCORTICOIDS [Concomitant]
     Indication: ANKYLOSING SPONDYLITIS
     Dosage: 5 MG DAILY
  9. CALCILAC [Concomitant]
     Indication: ANKYLOSING SPONDYLITIS
     Dates: start: 20110328

REACTIONS (12)
  - LYMPHADENOPATHY [None]
  - DEEP VEIN THROMBOSIS [None]
  - RENAL VENOUS CONGESTION [None]
  - RETROPERITONEAL LYMPHADENOPATHY [None]
  - HAEMATURIA [None]
  - PLEURAL EFFUSION [None]
  - HAEMANGIOMA OF LIVER [None]
  - GENITAL SWELLING [None]
  - RENAL IMPAIRMENT [None]
  - ANGIOIMMUNOBLASTIC T-CELL LYMPHOMA STAGE III [None]
  - LYMPHADENOPATHY MEDIASTINAL [None]
  - OEDEMA PERIPHERAL [None]
